FAERS Safety Report 15251812 (Version 2)
Quarter: 2018Q3

REPORT INFORMATION
  Report Type: Spontaneous
  Country: DE (occurrence: DE)
  Receive Date: 20180807
  Receipt Date: 20180817
  Transmission Date: 20181010
  Serious: Yes (Other)
  Sender: FDA-Public Use
  Company Number: PHHY2018DE062451

PATIENT
  Sex: Female

DRUGS (2)
  1. ILARIS [Suspect]
     Active Substance: CANAKINUMAB
     Indication: PRODUCT USED FOR UNKNOWN INDICATION
     Dosage: 150 MG/ML, (TWO INJECTIONS 2X150MG)
     Route: 065
     Dates: start: 2014
  2. ILARIS [Suspect]
     Active Substance: CANAKINUMAB
     Dosage: 150 MG/ML, (TWO INJECTIONS2X150MG)
     Route: 065

REACTIONS (3)
  - Pneumonia [Unknown]
  - Nasopharyngitis [Unknown]
  - Bronchitis [Unknown]
